FAERS Safety Report 7682434-5 (Version None)
Quarter: 2011Q3

REPORT INFORMATION
  Report Type: 
  Country: None (occurrence: None)
  Receive Date: 20110815
  Receipt Date: 20110808
  Transmission Date: 20111222
  Serious: Yes (Life-Threatening, Other)
  Sender: FDA-Public Use
  Company Number: JP-GENZYME-THYM-1002694

PATIENT
  Age: 33 Year
  Sex: Male
  Weight: 82.6 kg

DRUGS (1)
  1. THYMOGLOBULIN [Suspect]
     Indication: KIDNEY TRANSPLANT REJECTION
     Dosage: 1.5 MG/KG, QD
     Route: 042
     Dates: start: 20110804

REACTIONS (4)
  - PYREXIA [None]
  - BLOOD PRESSURE DECREASED [None]
  - CHILLS [None]
  - PHLEBITIS [None]
